FAERS Safety Report 7127508 (Version 9)
Quarter: 2012Q4

REPORT INFORMATION
  Report Type: 
  Country: US (occurrence: US)
  Receive Date: 20090924
  Receipt Date: 20121210
  Transmission Date: 20130627
  Serious: Yes (Other)
  Sender: FDA-Public Use
  Company Number: US-ASTRAZENECA-2008UW25769

PATIENT
  Age: 60 Year
  Sex: Male
  Weight: 120.2 kg

DRUGS (28)
  1. SEROQUEL [Suspect]
     Indication: MAJOR DEPRESSION
     Route: 048
  2. SEROQUEL [Suspect]
     Indication: SLEEP DISORDER
     Route: 048
  3. SEROQUEL [Suspect]
     Indication: ANXIETY
     Route: 048
  4. SEROQUEL [Suspect]
     Indication: MAJOR DEPRESSION
     Route: 048
  5. SEROQUEL [Suspect]
     Indication: SLEEP DISORDER
     Route: 048
  6. SEROQUEL [Suspect]
     Indication: ANXIETY
     Route: 048
  7. SEROQUEL [Suspect]
     Indication: MAJOR DEPRESSION
     Route: 048
  8. SEROQUEL [Suspect]
     Indication: SLEEP DISORDER
     Route: 048
  9. SEROQUEL [Suspect]
     Indication: ANXIETY
     Route: 048
  10. TYLENOL [Concomitant]
     Indication: BACK DISORDER
     Dosage: AS REQUIRED
  11. FLEXERIL [Concomitant]
     Indication: BACK DISORDER
     Dosage: TWO TIMES A DAY
  12. FLEXERIL [Concomitant]
     Indication: MUSCLE RELAXANT THERAPY
     Dosage: TWO TIMES A DAY
  13. FLEXERIL [Concomitant]
     Indication: ANALGESIC THERAPY
     Dosage: TWO TIMES A DAY
  14. FLEXERIL [Concomitant]
     Indication: BACK DISORDER
     Dosage: AS REQUIRED
  15. FLEXERIL [Concomitant]
     Indication: MUSCLE RELAXANT THERAPY
     Dosage: AS REQUIRED
  16. FLEXERIL [Concomitant]
     Indication: ANALGESIC THERAPY
     Dosage: AS REQUIRED
  17. LORAZEPAM [Concomitant]
     Dosage: AS REQUIRED
     Dates: start: 1994
  18. ACCUPRIL [Concomitant]
     Indication: HYPERTENSION
  19. ACCUPRIL [Concomitant]
     Indication: HYPERTENSION
     Dosage: GENERIC
  20. SYMVASTIN/ZOCOR [Concomitant]
     Indication: BLOOD CHOLESTEROL ABNORMAL
  21. AMBIEN [Concomitant]
     Dates: start: 1994
  22. COREG [Concomitant]
     Indication: ATRIAL FIBRILLATION
     Dates: start: 1999
  23. MONOHYDRATE [Concomitant]
  24. CODEINE [Concomitant]
     Indication: MUSCLE RELAXANT THERAPY
  25. CODEINE [Concomitant]
     Indication: ANALGESIC THERAPY
  26. CHLOROHYDRATE [Concomitant]
  27. LASIX [Concomitant]
  28. ACETAMINOPHEN [Concomitant]
     Dosage: AS REQUIRED

REACTIONS (25)
  - Suicidal ideation [Unknown]
  - Back pain [Recovered/Resolved]
  - Pain [Unknown]
  - Blood pressure increased [Unknown]
  - Dysgraphia [Unknown]
  - Depression [Unknown]
  - Emotional distress [Unknown]
  - Amnesia [Unknown]
  - Pain in extremity [Recovered/Resolved]
  - Malaise [Unknown]
  - Insomnia [Unknown]
  - Anxiety [Unknown]
  - Sleep disorder [Unknown]
  - Hypersomnia [Recovered/Resolved]
  - Blood glucose increased [Unknown]
  - Nightmare [Unknown]
  - Weight increased [Unknown]
  - Dry mouth [Unknown]
  - Therapeutic response unexpected [Unknown]
  - Abdominal distension [Unknown]
  - Drug dose omission [Unknown]
  - Intentional drug misuse [Unknown]
  - Off label use [Unknown]
  - Therapeutic response decreased [Unknown]
  - Drug ineffective for unapproved indication [Unknown]
